FAERS Safety Report 4666336-4 (Version None)
Quarter: 2005Q2

REPORT INFORMATION
  Report Type: 
  Country: None (occurrence: None)
  Receive Date: 20050518
  Receipt Date: 20050509
  Transmission Date: 20051028
  Serious: Yes (Hospitalization)
  Sender: FDA-Public Use
  Company Number: 2005-04-2086

PATIENT
  Age: 49 Year
  Sex: Female
  Weight: 91.6266 kg

DRUGS (2)
  1. NASONEX [Suspect]
     Indication: MULTIPLE ALLERGIES
     Dosage: 2 SPR/NAR QD NASAL SPRAY
     Route: 045
     Dates: start: 20050315
  2. NASONEX [Suspect]
     Indication: NASAL CONGESTION
     Dosage: 2 SPR/NAR QD NASAL SPRAY
     Route: 045
     Dates: start: 20050315

REACTIONS (4)
  - DRUG INEFFECTIVE [None]
  - INCORRECT DOSE ADMINISTERED [None]
  - PHARMACEUTICAL PRODUCT COMPLAINT [None]
  - WRONG TECHNIQUE IN DRUG USAGE PROCESS [None]
